FAERS Safety Report 4576155-5 (Version None)
Quarter: 2005Q1

REPORT INFORMATION
  Report Type: 
  Country: None (occurrence: None)
  Receive Date: 20050204
  Receipt Date: 20050124
  Transmission Date: 20050727
  Serious: Yes (Hospitalization)
  Sender: FDA-Public Use
  Company Number: 2005018822

PATIENT
  Age: 72 Year
  Sex: Female

DRUGS (5)
  1. XANAX [Suspect]
     Indication: DYSTHYMIC DISORDER
     Dosage: 0.25 MG (0.25 MG, DAILY), ORAL
     Route: 048
  2. CLAVULIN                   (AMOXICILLAN TRIHYDRATE, CLAVULANATE POTASS [Suspect]
     Indication: BRONCHITIS ACUTE
     Dosage: ORAL
     Route: 048
     Dates: start: 20041010, end: 20041026
  3. VENLAFAXINE HCL [Suspect]
     Indication: DYSTHYMIC DISORDER
     Dosage: 75 MG (37.5 MG, BID), ORAL
     Route: 048
  4. DIOVAN HCT [Suspect]
     Indication: HYPERTENSION
     Dosage: (DAIL), ORAL
     Route: 048
  5. PRAVASTATIN [Suspect]
     Indication: HYPERCHOLESTEROLAEMIA
     Dosage: 1 DF (DAILY), ORAL
     Route: 048

REACTIONS (4)
  - CLOSTRIDIUM COLITIS [None]
  - HAEMATOCHEZIA [None]
  - MALNUTRITION [None]
  - RENAL FAILURE [None]
